FAERS Safety Report 6100250-2 (Version None)
Quarter: 2009Q1

REPORT INFORMATION
  Report Type: 
  Country: None (occurrence: None)
  Receive Date: 20090226
  Receipt Date: 20090223
  Transmission Date: 20090719
  Serious: Yes (Life-Threatening)
  Sender: FDA-Public Use
  Company Number: 2009-192108-NL

PATIENT

DRUGS (2)
  1. ROCURONIUM BROMIDE [Suspect]
  2. LIGNOCAINE GEL WITH CHLORHEXIDINE [Concomitant]

REACTIONS (1)
  - CARDIAC ARREST [None]
